FAERS Safety Report 25165326 (Version 1)
Quarter: 2025Q2

REPORT INFORMATION
  Report Type: Spontaneous
  Country: US (occurrence: None)
  Receive Date: 20250407
  Receipt Date: 20250407
  Transmission Date: 20250716
  Serious: No
  Sender: ENCUBE ETHICALS
  Company Number: US-Encube-001712

PATIENT
  Sex: Female

DRUGS (2)
  1. TAVABOROLE [Suspect]
     Active Substance: TAVABOROLE
     Indication: Onychomycosis
     Dates: start: 2024
  2. TAVABOROLE [Suspect]
     Active Substance: TAVABOROLE
     Indication: Fungal infection
     Dates: start: 2024

REACTIONS (2)
  - Onychoclasis [Unknown]
  - Off label use [Unknown]
